FAERS Safety Report 20573452 (Version 1)
Quarter: 2022Q1

REPORT INFORMATION
  Report Type: Spontaneous
  Country: US (occurrence: US)
  Receive Date: 20220309
  Receipt Date: 20220309
  Transmission Date: 20220423
  Serious: No
  Sender: FDA-Public Use
  Company Number: US-SA-SAC20220302001553

PATIENT
  Sex: Female

DRUGS (28)
  1. DUPIXENT [Suspect]
     Active Substance: DUPILUMAB
     Indication: Asthma
     Dosage: UNK, 1X
     Route: 058
     Dates: start: 20210824, end: 20210824
  2. DUPIXENT [Suspect]
     Active Substance: DUPILUMAB
     Dosage: 300 MG, QOW
     Route: 058
  3. IRON [Concomitant]
     Active Substance: IRON
     Indication: Iron deficiency anaemia
  4. AMOXICILLIN\CLAVULANIC ACID [Concomitant]
     Active Substance: AMOXICILLIN\CLAVULANIC ACID
  5. ADVAIR HFA [Concomitant]
     Active Substance: FLUTICASONE PROPIONATE\SALMETEROL XINAFOATE
     Indication: Asthma
  6. ALBUTEROL SULFATE [Concomitant]
     Active Substance: ALBUTEROL SULFATE
     Indication: Asthma
  7. ALBUTEROL SULFATE [Concomitant]
     Active Substance: ALBUTEROL SULFATE
     Indication: Asthma
  8. AZITHROMYCIN [Concomitant]
     Active Substance: AZITHROMYCIN
  9. BACTRIM [Concomitant]
     Active Substance: SULFAMETHOXAZOLE\TRIMETHOPRIM
  10. COMBIVENT [Concomitant]
     Active Substance: ALBUTEROL SULFATE\IPRATROPIUM BROMIDE
     Indication: Asthma
  11. DIAZEPAM [Concomitant]
     Active Substance: DIAZEPAM
  12. DILTIAZEM [Concomitant]
     Active Substance: DILTIAZEM
     Indication: Hypertension
  13. EPIPEN [Concomitant]
     Active Substance: EPINEPHRINE
  14. FASENRA [Concomitant]
     Active Substance: BENRALIZUMAB
     Indication: Asthma
  15. HYDROCODONE [Concomitant]
     Active Substance: HYDROCODONE
  16. ACETAMINOPHEN [Concomitant]
     Active Substance: ACETAMINOPHEN
  17. LIDOCAINE [Concomitant]
     Active Substance: LIDOCAINE
  18. LISINOPRIL [Concomitant]
     Active Substance: LISINOPRIL
     Indication: Hypertension
  19. MELOXICAM [Concomitant]
     Active Substance: MELOXICAM
  20. MONTELUKAST SODIUM [Concomitant]
     Active Substance: MONTELUKAST SODIUM
     Indication: Asthma
  21. APAP [Concomitant]
     Active Substance: ACETAMINOPHEN
  22. PRAMIPEXOLE [Concomitant]
     Active Substance: PRAMIPEXOLE
  23. PREDNISONE [Concomitant]
     Active Substance: PREDNISONE
  24. SAVELLA [Concomitant]
     Active Substance: MILNACIPRAN HYDROCHLORIDE
  25. TIZANIDINE [Concomitant]
     Active Substance: TIZANIDINE
  26. TRIAMCINOLONE [Concomitant]
     Active Substance: TRIAMCINOLONE
  27. XOLAIR [Concomitant]
     Active Substance: OMALIZUMAB
     Indication: Asthma
  28. SOL [Concomitant]

REACTIONS (4)
  - Quality of life decreased [Not Recovered/Not Resolved]
  - Fatigue [Not Recovered/Not Resolved]
  - Insomnia [Not Recovered/Not Resolved]
  - Asthma [Not Recovered/Not Resolved]
